FAERS Safety Report 21406614 (Version 1)
Quarter: 2022Q4

REPORT INFORMATION
  Report Type: Spontaneous
  Country: ES (occurrence: None)
  Receive Date: 20221004
  Receipt Date: 20221004
  Transmission Date: 20230113
  Serious: Yes (Hospitalization)
  Sender: FDA-Public Use
  Company Number: ES-ROCHE-3191244

PATIENT
  Age: 42 Year
  Sex: Male
  Weight: 85.5 kg

DRUGS (7)
  1. RIVOTRIL [Suspect]
     Active Substance: CLONAZEPAM
     Indication: Anxiety
     Route: 048
     Dates: start: 20180212, end: 20220710
  2. RIVOTRIL [Suspect]
     Active Substance: CLONAZEPAM
     Indication: Insomnia
  3. RIVOTRIL [Suspect]
     Active Substance: CLONAZEPAM
     Indication: Multiple sclerosis
  4. TRAZODONE HYDROCHLORIDE [Suspect]
     Active Substance: TRAZODONE HYDROCHLORIDE
     Indication: Anxiety
     Route: 048
     Dates: start: 20211005, end: 20220710
  5. TRAZODONE HYDROCHLORIDE [Suspect]
     Active Substance: TRAZODONE HYDROCHLORIDE
     Indication: Insomnia
  6. TYSABRI [Suspect]
     Active Substance: NATALIZUMAB
     Indication: Relapsing-remitting multiple sclerosis
     Route: 042
     Dates: start: 20220707
  7. LOPRAZOLAM [Concomitant]
     Active Substance: LOPRAZOLAM
     Dates: start: 20220811

REACTIONS (1)
  - Speech disorder [Recovered/Resolved]

NARRATIVE: CASE EVENT DATE: 20220714
